FAERS Safety Report 13613263 (Version 2)
Quarter: 2018Q3

REPORT INFORMATION
  Report Type: Spontaneous
  Country: JP (occurrence: JP)
  Receive Date: 20170605
  Receipt Date: 20180716
  Transmission Date: 20181010
  Serious: Yes (Death, Other)
  Sender: FDA-Public Use
  Company Number: JP-SA-2017SA049547

PATIENT
  Age: 70 Year
  Sex: Female

DRUGS (6)
  1. CALCIUM LEVOFOLINATE [Suspect]
     Active Substance: LEVOLEUCOVORIN CALCIUM
     Dosage: UNK UNK,QCY
     Route: 041
  2. FLUOROURACIL. [Suspect]
     Active Substance: FLUOROURACIL
     Indication: COLON CANCER
     Dosage: Q2W AT A 50% DOSE.
     Route: 042
  3. ELPLAT [Suspect]
     Active Substance: OXALIPLATIN
     Indication: COLON CANCER
     Dosage: Q2W WAS STARTED AT A 50% DOSE
     Route: 041
  4. FLUOROURACIL. [Suspect]
     Active Substance: FLUOROURACIL
     Dosage: Q3W FOR 2 YEARS 3 MONTHS. (40 TIMES IN TOTAL)
     Route: 040
  5. CALCIUM LEVOFOLINATE [Suspect]
     Active Substance: LEVOLEUCOVORIN CALCIUM
     Indication: COLON CANCER
     Dosage: UNK UNK,QCY
     Route: 041
  6. ELPLAT [Suspect]
     Active Substance: OXALIPLATIN
     Dosage: Q3W FOR 2 YEARS 3 MONTHS (40 TIMES )
     Route: 041

REACTIONS (4)
  - Coma [Fatal]
  - Seizure [Fatal]
  - Leukoencephalopathy [Fatal]
  - Decreased appetite [Unknown]
